FAERS Safety Report 7764736-7 (Version None)
Quarter: 2011Q3

REPORT INFORMATION
  Report Type: 
  Country: None (occurrence: None)
  Receive Date: 20110921
  Receipt Date: 20110921
  Transmission Date: 20111222
  Serious: Yes (Other)
  Sender: FDA-Public Use
  Company Number: None

PATIENT
  Age: 78 Year
  Sex: Male
  Weight: 84.821 kg

DRUGS (1)
  1. METHYLPHENIDATE HCL [Suspect]

REACTIONS (5)
  - EYE PAIN [None]
  - PRODUCT SUBSTITUTION ISSUE [None]
  - ANXIETY [None]
  - COORDINATION ABNORMAL [None]
  - HEADACHE [None]
